FAERS Safety Report 20958722 (Version 1)
Quarter: 2022Q2

REPORT INFORMATION
  Report Type: Spontaneous
  Country: US (occurrence: None)
  Receive Date: 20220614
  Receipt Date: 20220614
  Transmission Date: 20220721
  Serious: Yes (Hospitalization)
  Sender: FDA-Public Use
  Company Number: None

PATIENT
  Age: 65 Year
  Sex: Male
  Weight: 114 kg

DRUGS (2)
  1. IRINOTECAN [Suspect]
     Active Substance: IRINOTECAN
     Indication: Neoplasm malignant
     Dates: start: 20220307, end: 20220321
  2. LEUCOVORIN [Concomitant]
     Active Substance: LEUCOVORIN
     Dates: start: 20220307, end: 20220321

REACTIONS (7)
  - Rectal haemorrhage [None]
  - Infusion related reaction [None]
  - Paraesthesia oral [None]
  - Paraesthesia [None]
  - Throat tightness [None]
  - Muscular weakness [None]
  - Dysphagia [None]

NARRATIVE: CASE EVENT DATE: 20220321
